FAERS Safety Report 7332033-X (Version None)
Quarter: 2011Q1

REPORT INFORMATION
  Report Type: 
  Country: None (occurrence: None)
  Receive Date: 20110304
  Receipt Date: 20110302
  Transmission Date: 20110831
  Serious: Yes (Other)
  Sender: FDA-Public Use
  Company Number: JP-PFIZER INC-2011036983

PATIENT
  Age: 71 Year
  Sex: Female

DRUGS (4)
  1. NORVASC [Suspect]
     Indication: HYPERTENSION
     Dosage: 5 MG, DAILY
     Route: 048
     Dates: start: 20100101
  2. GASTER [Concomitant]
     Indication: GASTRIC ULCER
     Dosage: 20 MG, A DAY
     Route: 048
     Dates: start: 20101101
  3. DEPAS [Concomitant]
     Indication: SLEEP DISORDER
     Dosage: 0.5 MG, A DAY
     Route: 048
     Dates: start: 20101001
  4. BEZATOL [Concomitant]
     Indication: HYPERLIPIDAEMIA
     Dosage: 200 MG, A DAY
     Route: 048
     Dates: start: 20091001

REACTIONS (1)
  - COGNITIVE DISORDER [None]
